FAERS Safety Report 8135933 (Version 4)
Quarter: 2015Q4

REPORT INFORMATION
  Report Type: Spontaneous
  Country: JP (occurrence: JP)
  Receive Date: 20110914
  Receipt Date: 20151028
  Transmission Date: 20160305
  Serious: Yes (Hospitalization)
  Sender: FDA-Public Use
  Company Number: JP-SANOFI-AVENTIS-2011SA058643

PATIENT
  Age: 46 Year
  Sex: Female
  Weight: 59.2 kg

DRUGS (7)
  1. LANTUS [Suspect]
     Active Substance: INSULIN GLARGINE
     Indication: TYPE 2 DIABETES MELLITUS
     Dosage: MASSIVE INSULIN INJECTIONS IN MORE THAN 10 SITES? DOSE:900 UNIT(S)
     Route: 058
  2. INSULIN LISPRO [Suspect]
     Active Substance: INSULIN LISPRO
     Indication: SUICIDE ATTEMPT
     Dosage: IN MORE THAN 10 SITES DOSE:2100 UNIT(S)
     Route: 058
  3. METFORMIN [Concomitant]
     Active Substance: METFORMIN HYDROCHLORIDE
     Indication: TYPE 2 DIABETES MELLITUS
  4. LANTUS [Suspect]
     Active Substance: INSULIN GLARGINE
     Indication: SUICIDE ATTEMPT
     Dosage: MASSIVE INSULIN INJECTIONS IN MORE THAN 10 SITES? DOSE:900 UNIT(S)
     Route: 058
  5. LANTUS [Suspect]
     Active Substance: INSULIN GLARGINE
     Indication: TYPE 2 DIABETES MELLITUS
     Dosage: DOSE:10 UNIT(S)
     Route: 065
  6. INSULIN LISPRO [Suspect]
     Active Substance: INSULIN LISPRO
     Indication: SUICIDE ATTEMPT
     Dosage: 20-20-20 UNITS
     Route: 065
  7. LANTUS [Suspect]
     Active Substance: INSULIN GLARGINE
     Indication: SUICIDE ATTEMPT
     Dosage: DOSE:10 UNIT(S)
     Route: 065

REACTIONS (8)
  - Blood potassium decreased [Recovered/Resolved]
  - Hyperhidrosis [Recovered/Resolved]
  - Abnormal behaviour [Unknown]
  - Intentional overdose [Unknown]
  - Suicide attempt [Unknown]
  - Blood pressure decreased [Recovered/Resolved]
  - Insulin C-peptide increased [Recovered/Resolved]
  - Hypoglycaemia [Recovered/Resolved]
